FAERS Safety Report 18200646 (Version 5)
Quarter: 2023Q2

REPORT INFORMATION
  Report Type: Spontaneous
  Country: US (occurrence: None)
  Receive Date: 20200827
  Receipt Date: 20230605
  Transmission Date: 20230721
  Serious: Yes (Other)
  Sender: FDA-Public Use
  Company Number: US-ROCHE-2664951

PATIENT
  Age: 30 Year
  Sex: Male

DRUGS (4)
  1. HEMLIBRA [Suspect]
     Active Substance: EMICIZUMAB-KXWH
     Indication: Factor VIII deficiency
     Dosage: FORM OF ADMIN. 105 MG/0.7ML
     Route: 058
     Dates: start: 20190501
  2. HEMLIBRA [Suspect]
     Active Substance: EMICIZUMAB-KXWH
     Indication: Factor VIII deficiency
     Route: 058
     Dates: start: 202212
  3. HEMLIBRA [Suspect]
     Active Substance: EMICIZUMAB-KXWH
     Dosage: STRENGTH 60MG/0.4ML
     Route: 058
     Dates: start: 202302
  4. HEMLIBRA [Suspect]
     Active Substance: EMICIZUMAB-KXWH
     Route: 058
     Dates: start: 20211227

REACTIONS (4)
  - Haemarthrosis [Recovered/Resolved]
  - Haemarthrosis [Recovered/Resolved]
  - Haemarthrosis [Recovered/Resolved]
  - Haemorrhage [Recovered/Resolved]

NARRATIVE: CASE EVENT DATE: 20220101
